FAERS Safety Report 16164253 (Version 1)
Quarter: 2019Q2

REPORT INFORMATION
  Report Type: Spontaneous
  Country: JP (occurrence: JP)
  Receive Date: 20190405
  Receipt Date: 20190405
  Transmission Date: 20190711
  Serious: Yes (Hospitalization)
  Sender: FDA-Public Use
  Company Number: JP-ELI_LILLY_AND_COMPANY-JP201902010586

PATIENT
  Age: 90 Year
  Sex: Male

DRUGS (6)
  1. ZALUTIA [Suspect]
     Active Substance: TADALAFIL
     Indication: PRODUCT USED FOR UNKNOWN INDICATION
     Dosage: 5 MG, DAILY
     Route: 048
     Dates: start: 20180719
  2. LAXOBERON [Concomitant]
     Active Substance: SODIUM PICOSULFATE
  3. URIEF [Concomitant]
     Active Substance: SILODOSIN
  4. ZYLORIC [Concomitant]
     Active Substance: ALLOPURINOL
  5. FAMOTIDINE. [Concomitant]
     Active Substance: FAMOTIDINE
  6. ZETIA [Concomitant]
     Active Substance: EZETIMIBE

REACTIONS (1)
  - Osteoarthritis [Recovered/Resolved]
